FAERS Safety Report 7207626-0 (Version None)
Quarter: 2011Q1

REPORT INFORMATION
  Report Type: 
  Country: None (occurrence: None)
  Receive Date: 20110103
  Receipt Date: 20101223
  Transmission Date: 20110831
  Serious: Yes (Hospitalization)
  Sender: FDA-Public Use
  Company Number: IT-ASTRAZENECA-2010SE60769

PATIENT
  Age: 18613 Day
  Sex: Male

DRUGS (3)
  1. ESOPRAL [Suspect]
     Indication: PROPHYLAXIS
     Route: 048
     Dates: start: 20101122, end: 20101122
  2. AUGMENTIN '125' [Suspect]
     Indication: OROPHARYNGEAL PAIN
     Route: 048
     Dates: start: 20101122, end: 20101122
  3. NEO BOROCILLINA [Suspect]
     Route: 048
     Dates: start: 20101115, end: 20101121

REACTIONS (6)
  - CYANOSIS [None]
  - URTICARIA [None]
  - DYSPNOEA [None]
  - THROAT TIGHTNESS [None]
  - HEADACHE [None]
  - PRURITUS [None]
